FAERS Safety Report 7462022-6 (Version None)
Quarter: 2011Q1

REPORT INFORMATION
  Report Type: 
  Country: None (occurrence: None)
  Receive Date: 20110302
  Receipt Date: 20101104
  Transmission Date: 20110831
  Serious: Yes (Other)
  Sender: FDA-Public Use
  Company Number: 163-21880-10111338

PATIENT
  Sex: Male

DRUGS (3)
  1. REVLIMID [Suspect]
     Indication: MULTIPLE MYELOMA
     Dosage: 25 MG, 1 IN 1 D, PO, 15-10 MG, QD X 21 DAYS, PO, 10 MG, QD X 21 DAYS, PO
     Route: 048
     Dates: start: 20090127
  2. REVLIMID [Suspect]
     Indication: MULTIPLE MYELOMA
     Dosage: 25 MG, 1 IN 1 D, PO, 15-10 MG, QD X 21 DAYS, PO, 10 MG, QD X 21 DAYS, PO
     Route: 048
     Dates: start: 20090801, end: 20090101
  3. REVLIMID [Suspect]
     Indication: MULTIPLE MYELOMA
     Dosage: 25 MG, 1 IN 1 D, PO, 15-10 MG, QD X 21 DAYS, PO, 10 MG, QD X 21 DAYS, PO
     Route: 048
     Dates: start: 20101103

REACTIONS (1)
  - SKIN CANCER [None]
